FAERS Safety Report 8424876-6 (Version None)
Quarter: 2012Q2

REPORT INFORMATION
  Report Type: 
  Country: None (occurrence: None)
  Receive Date: 20120611
  Receipt Date: 20120601
  Transmission Date: 20120825
  Serious: Yes (Other)
  Sender: FDA-Public Use
  Company Number: AU-GE HEALTHCARE MEDICAL DIAGNOSTICS-OMPQ-NO-1206L-0562

PATIENT
  Sex: 0

DRUGS (2)
  1. OMNIPAQUE 140 [Suspect]
     Indication: BACK PAIN
     Route: 008
  2. METHYLPREDNISOLONE [Suspect]
     Indication: BACK PAIN

REACTIONS (1)
  - SPINAL CORD INFARCTION [None]
